FAERS Safety Report 26020920 (Version 1)
Quarter: 2025Q4

REPORT INFORMATION
  Report Type: Spontaneous
  Country: US (occurrence: None)
  Receive Date: 20251106
  Receipt Date: 20251106
  Transmission Date: 20260117
  Serious: Yes (Other)
  Sender: FDA-CTU
  Company Number: None

PATIENT

DRUGS (1)
  1. HUMAN BLOOD CELLS [Suspect]
     Active Substance: HUMAN BLOOD CELLS

REACTIONS (1)
  - Product label issue [None]

NARRATIVE: CASE EVENT DATE: 20250505
